FAERS Safety Report 4390469-3 (Version None)
Quarter: 2004Q2

REPORT INFORMATION
  Report Type: 
  Country: None (occurrence: None)
  Receive Date: 20040630
  Receipt Date: 20040618
  Transmission Date: 20050107
  Serious: Yes (Hospitalization)
  Sender: FDA-Public Use
  Company Number: HQWYE522318JUN04

PATIENT
  Age: 77 Year
  Sex: Male

DRUGS (1)
  1. CORDARONE [Suspect]
     Indication: HYPERURICAEMIA
     Dosage: 200 MG 1X PER 1 DAY
     Route: 048
     Dates: start: 20030606, end: 20040121

REACTIONS (17)
  - ASTHENIA [None]
  - CONSTIPATION [None]
  - DIFFICULTY IN WALKING [None]
  - DYSKINESIA [None]
  - DYSPHONIA [None]
  - FALL [None]
  - HEPATITIS CHOLESTATIC [None]
  - HYPONATRAEMIA [None]
  - HYPOPROTEINAEMIA [None]
  - HYPOTHYROIDISM [None]
  - MUSCULAR WEAKNESS [None]
  - MYOCLONUS [None]
  - POLYNEUROPATHY [None]
  - RENAL FAILURE CHRONIC [None]
  - SWELLING FACE [None]
  - UPPER LIMB FRACTURE [None]
  - WATER INTOXICATION [None]
